FAERS Safety Report 8510326 (Version 3)
Quarter: 2013Q3

REPORT INFORMATION
  Report Type: Spontaneous
  Country: US (occurrence: None)
  Receive Date: 20120409
  Receipt Date: 20130815
  Transmission Date: 20140515
  Serious: Yes (Other)
  Sender: FDA-Public Use
  Company Number: ADR-2009-6790

PATIENT
  Sex: Female

DRUGS (3)
  1. LIORESAL [Suspect]
     Indication: MUSCLE SPASTICITY
     Dosage: 50 MCG, DAILY, INTRATHE
  2. DILAUDID [Concomitant]
  3. PRIALT [Concomitant]

REACTIONS (12)
  - Headache [None]
  - Dizziness [None]
  - Agitation [None]
  - Restlessness [None]
  - Nausea [None]
  - Vomiting [None]
  - Product odour abnormal [None]
  - Herpes zoster [None]
  - Insomnia [None]
  - Muscle spasticity [None]
  - Condition aggravated [None]
  - Drug effect decreased [None]
